FAERS Safety Report 12934958 (Version 13)
Quarter: 2019Q3

REPORT INFORMATION
  Report Type: Report from Study
  Country: DE (occurrence: DE)
  Receive Date: 20161113
  Receipt Date: 20190707
  Transmission Date: 20191004
  Serious: Yes (Other)
  Sender: FDA-Public Use
  Company Number: PHHY2015DE006959

PATIENT
  Age: 65 Year
  Sex: Female

DRUGS (1)
  1. GILENYA [Suspect]
     Active Substance: FINGOLIMOD HYDROCHLORIDE
     Indication: MULTIPLE SCLEROSIS
     Dosage: UNK, QD
     Route: 048
     Dates: start: 20140129

REACTIONS (14)
  - Blood cholesterol increased [Unknown]
  - Restless legs syndrome [Unknown]
  - White blood cell count increased [Recovered/Resolved]
  - Blood bilirubin increased [Unknown]
  - High density lipoprotein increased [Unknown]
  - Intervertebral disc protrusion [Unknown]
  - Iron deficiency [Unknown]
  - Restlessness [Unknown]
  - Hypercholesterolaemia [Unknown]
  - Herpes zoster [Recovered/Resolved]
  - Blood alkaline phosphatase decreased [Unknown]
  - White blood cell count increased [Unknown]
  - Anxiety [Unknown]
  - Nasopharyngitis [Recovered/Resolved]

NARRATIVE: CASE EVENT DATE: 20140819
